FAERS Safety Report 18235244 (Version 2)
Quarter: 2020Q3

REPORT INFORMATION
  Report Type: Spontaneous
  Country: US (occurrence: US)
  Receive Date: 20200904
  Receipt Date: 20200910
  Transmission Date: 20201103
  Serious: Yes (Other)
  Sender: FDA-Public Use
  Company Number: US-BAXTER-2020BAX018159

PATIENT
  Sex: Male

DRUGS (1)
  1. TISSEEL [Suspect]
     Active Substance: FIBRINOGEN HUMAN\THROMBIN HUMAN
     Indication: TISSUE SEALING
     Route: 065
     Dates: start: 202003, end: 202003

REACTIONS (3)
  - Product use issue [Unknown]
  - Anastomotic leak [Recovered/Resolved]
  - Application site necrosis [Recovered/Resolved]

NARRATIVE: CASE EVENT DATE: 202003
